FAERS Safety Report 5291854-8 (Version None)
Quarter: 2007Q2

REPORT INFORMATION
  Report Type: 
  Country: None (occurrence: None)
  Receive Date: 20070410
  Receipt Date: 20070327
  Transmission Date: 20071010
  Serious: Yes (Hospitalization)
  Sender: FDA-Public Use
  Company Number: DE-ELI_LILLY_AND_COMPANY-DE200703005813

PATIENT
  Age: 56 Year
  Sex: Female

DRUGS (23)
  1. FORTEO [Suspect]
     Indication: OSTEOPOROSIS
     Route: 058
     Dates: start: 20070222, end: 20070311
  2. NEXIUM [Concomitant]
  3. LEVOTHYROXINE SODIUM [Concomitant]
     Route: 048
  4. RAMIPRIL [Concomitant]
  5. AMLODIPINE [Concomitant]
  6. PREDNISOLONE [Concomitant]
  7. AZATHIOPRINE [Concomitant]
  8. TORSEMIDE [Concomitant]
  9. MIRTAZAPINE [Concomitant]
  10. MORPHINE [Concomitant]
     Dosage: 1200 MG, UNK
  11. KALINOR [Concomitant]
  12. CALCIMAGON [Concomitant]
  13. COTRIM DS [Concomitant]
  14. AVELOX [Concomitant]
  15. SPASMO-MUCOSOLVAN [Concomitant]
  16. AMPHO-MORONAL [Concomitant]
  17. SPIRIVA [Concomitant]
  18. OXIS /SCH/ [Concomitant]
  19. CYCLOCAPS BECLAM [Concomitant]
  20. ALBUTEROL [Concomitant]
  21. ATROVENT [Concomitant]
  22. IMMUNOSUPPRESSIVE AGENTS [Concomitant]
  23. PROMETHAZINE [Concomitant]

REACTIONS (3)
  - FATIGUE [None]
  - RENAL FAILURE [None]
  - SOMNOLENCE [None]
